FAERS Safety Report 15001504 (Version 1)
Quarter: 2018Q2

REPORT INFORMATION
  Report Type: Spontaneous
  Country: CH (occurrence: CH)
  Receive Date: 20180612
  Receipt Date: 20180612
  Transmission Date: 20180711
  Serious: Yes (Hospitalization)
  Sender: FDA-Public Use
  Company Number: CH-TEVA-2018-CH-905032

PATIENT
  Age: 80 Year
  Sex: Female
  Weight: 46.6 kg

DRUGS (8)
  1. CO-AMOXI -MEPHA 1000 LACTAB [Suspect]
     Active Substance: AMOXICILLIN\CLAVULANATE POTASSIUM
     Dosage: 2 GRAM DAILY;
     Route: 048
     Dates: start: 20180515, end: 20180519
  2. MARCOUMAR TABLETTEN [Concomitant]
     Route: 048
  3. LITALIR KAPSELN [Concomitant]
     Dosage: 500 MILLIGRAM DAILY;
     Route: 048
  4. CO-AMOXI [Suspect]
     Active Substance: AMOXICILLIN\CLAVULANATE POTASSIUM
     Dosage: 3600 MILLIGRAM DAILY;
     Route: 041
     Dates: start: 20180520, end: 20180521
  5. PLAVIX [Concomitant]
     Active Substance: CLOPIDOGREL BISULFATE
     Dosage: 75 MILLIGRAM DAILY;
     Route: 048
  6. ENALAPRIL-MEPHA [Concomitant]
     Active Substance: ENALAPRIL
     Dosage: 5 MILLIGRAM DAILY;
     Route: 048
  7. DILATREND 6,25 MG TABLETTEN [Concomitant]
     Dosage: 6.25 MILLIGRAM DAILY;
     Route: 048
  8. PANTOZOL [Concomitant]
     Active Substance: PANTOPRAZOLE SODIUM
     Dosage: 20 MILLIGRAM DAILY;
     Route: 048

REACTIONS (5)
  - Gait disturbance [Recovering/Resolving]
  - Confusional state [Recovering/Resolving]
  - Psychomotor retardation [Recovering/Resolving]
  - Tremor [Recovering/Resolving]
  - Muscle rigidity [Recovering/Resolving]

NARRATIVE: CASE EVENT DATE: 20180520
